FAERS Safety Report 11152871 (Version 2)
Quarter: 2015Q3

REPORT INFORMATION
  Report Type: Spontaneous
  Country: US (occurrence: US)
  Receive Date: 20150601
  Receipt Date: 20150714
  Transmission Date: 20151125
  Serious: Yes (Hospitalization, Other)
  Sender: FDA-Public Use
  Company Number: US-TEVA-565356USA

PATIENT
  Age: 70 Year
  Sex: Male

DRUGS (5)
  1. REBIF [Suspect]
     Active Substance: INTERFERON BETA-1A
     Indication: MULTIPLE SCLEROSIS
     Route: 065
  2. TECFIDERA [Suspect]
     Active Substance: DIMETHYL FUMARATE
     Indication: MULTIPLE SCLEROSIS
     Dosage: 2 DOSAGE FORMS DAILY; 2 A DAY
     Route: 065
  3. PRADAXA [Suspect]
     Active Substance: DABIGATRAN ETEXILATE MESYLATE
     Indication: ATRIAL FIBRILLATION
     Route: 065
  4. CARVEDILOL. [Suspect]
     Active Substance: CARVEDILOL
     Indication: ATRIAL FIBRILLATION
     Route: 065
  5. AMPYRA [Suspect]
     Active Substance: DALFAMPRIDINE
     Indication: MULTIPLE SCLEROSIS
     Route: 065

REACTIONS (14)
  - Fall [Unknown]
  - Abdominal distension [Unknown]
  - Rhinorrhoea [Unknown]
  - Head injury [Unknown]
  - Hyperhidrosis [Unknown]
  - Abdominal pain [Unknown]
  - Diarrhoea [Unknown]
  - Abdominal pain upper [Unknown]
  - Hot flush [Unknown]
  - Syncope [Unknown]
  - Loss of consciousness [Unknown]
  - Adverse event [Unknown]
  - Flushing [Unknown]
  - Off label use [Unknown]

NARRATIVE: CASE EVENT DATE: 20140815
